FAERS Safety Report 8800702 (Version 7)
Quarter: 2012Q4

REPORT INFORMATION
  Report Type: Report from Study
  Country: DE (occurrence: DE)
  Receive Date: 20120921
  Receipt Date: 20121231
  Transmission Date: 20130627
  Serious: Yes (Hospitalization)
  Sender: FDA-Public Use
  Company Number: DE-ROCHE-1122110

PATIENT
  Age: 55 Year
  Sex: Male
  Weight: 87 kg

DRUGS (19)
  1. BEVACIZUMAB [Suspect]
     Indication: RECTAL CANCER
     Dosage: Date of last dose prior to SAE: 29/Aug/2012
     Route: 042
     Dates: start: 20120509, end: 20120912
  2. BEVACIZUMAB [Suspect]
     Route: 042
     Dates: start: 20120919, end: 20121002
  3. BEVACIZUMAB [Suspect]
     Route: 042
     Dates: start: 20121024
  4. OXALIPLATIN [Suspect]
     Indication: RECTAL CANCER
     Dosage: Date of last dose prior to SAE: 29/Aug/2012
     Route: 042
     Dates: start: 20120509, end: 20120912
  5. OXALIPLATIN [Suspect]
     Route: 042
     Dates: start: 20120919, end: 20121002
  6. OXALIPLATIN [Suspect]
     Route: 042
     Dates: start: 20121024
  7. 5-FLUOROURACIL [Suspect]
     Indication: RECTAL CANCER
     Dosage: Date of last dose prior to SAE: 29/Aug/2012
     Route: 042
     Dates: start: 20120509, end: 20120912
  8. 5-FLUOROURACIL [Suspect]
     Route: 042
     Dates: start: 20120919, end: 20121002
  9. 5-FLUOROURACIL [Suspect]
     Route: 042
     Dates: start: 20121024
  10. LEUCOVORIN [Suspect]
     Indication: RECTAL CANCER
     Dosage: Date of last dose prior to SAE: 29/Aug/2012
     Route: 042
     Dates: start: 20120509, end: 20120912
  11. LEUCOVORIN [Suspect]
     Route: 042
     Dates: start: 20120919, end: 20121002
  12. LEUCOVORIN [Suspect]
     Route: 042
     Dates: start: 20121024
  13. MCP [Concomitant]
     Indication: VOMITING
     Route: 042
     Dates: start: 20120910, end: 20120911
  14. NOVALGIN [Concomitant]
     Indication: PAIN
     Route: 042
     Dates: start: 20120910, end: 20120910
  15. NOVALGIN [Concomitant]
     Dosage: 4x3bg
     Route: 048
     Dates: start: 20120910, end: 20120915
  16. NOVALGIN [Concomitant]
     Route: 048
     Dates: start: 20120919, end: 20121116
  17. DIPIDOLOR [Concomitant]
     Indication: PAIN
     Route: 058
     Dates: start: 20120911, end: 20120911
  18. BUSCOPAN [Concomitant]
     Indication: MUSCLE SPASMS
     Route: 048
     Dates: start: 20120911, end: 20120911
  19. METOCLOPRAMIDE [Concomitant]
     Route: 065
     Dates: start: 20120910, end: 20120911

REACTIONS (3)
  - Acute abdomen [Not Recovered/Not Resolved]
  - Renal colic [Not Recovered/Not Resolved]
  - Calculus ureteric [Recovered/Resolved]
